FAERS Safety Report 22149096 (Version 3)
Quarter: 2023Q2

REPORT INFORMATION
  Report Type: Spontaneous
  Country: RO (occurrence: RO)
  Receive Date: 20230328
  Receipt Date: 20230417
  Transmission Date: 20230721
  Serious: Yes (Hospitalization, Other)
  Sender: FDA-Public Use
  Company Number: None

PATIENT
  Age: 73 Year
  Sex: Female

DRUGS (11)
  1. VANCOMYCIN [Interacting]
     Active Substance: VANCOMYCIN
     Indication: Endocarditis enterococcal
     Dosage: UNK (DOSES ADJUSTED TO RENAL FUNCTION)
     Route: 065
  2. IMIPENEM AND CILASTATIN [Interacting]
     Active Substance: CILASTATIN SODIUM\IMIPENEM
     Indication: Endocarditis enterococcal
     Dosage: UNK, DOSES ADJUSTED TO RENAL FUNCTION
     Route: 065
  3. AMPICILLIN [Suspect]
     Active Substance: AMPICILLIN
     Indication: Endocarditis enterococcal
     Dosage: UNK
     Route: 065
  4. ACENOCOUMAROL [Interacting]
     Active Substance: ACENOCOUMAROL
     Indication: Anticoagulant therapy
     Dosage: UNK (PAST HISTORY- WITHOUT INR MONITORING)
     Route: 065
  5. ACENOCOUMAROL [Interacting]
     Active Substance: ACENOCOUMAROL
     Indication: Mitral valve replacement
     Dosage: UNK
     Route: 065
  6. ACENOCOUMAROL [Interacting]
     Active Substance: ACENOCOUMAROL
     Indication: Atrial fibrillation
     Dosage: UNK
     Route: 048
  7. LEVOTHYROXINE [Concomitant]
     Active Substance: LEVOTHYROXINE
     Indication: Hypothyroidism
     Dosage: UNK
     Route: 065
  8. CARVEDILOL [Concomitant]
     Active Substance: CARVEDILOL
     Indication: Drug therapy
     Dosage: UNK
     Route: 065
  9. CANDESARTAN [Concomitant]
     Active Substance: CANDESARTAN
     Indication: Drug therapy
     Dosage: UNK
     Route: 065
  10. GENTAMICIN [Concomitant]
     Active Substance: GENTAMICIN
     Indication: Endocarditis enterococcal
     Dosage: UNK
     Route: 065
  11. CEFTRIAXONE [Concomitant]
     Active Substance: CEFTRIAXONE
     Indication: Urinary tract infection enterococcal
     Dosage: UNK
     Route: 065

REACTIONS (7)
  - Anticoagulation drug level above therapeutic [Recovered/Resolved]
  - Drug interaction [Recovered/Resolved]
  - Epistaxis [Recovered/Resolved]
  - Cytopenia [Recovered/Resolved]
  - Anaemia [Recovered/Resolved]
  - Thrombocytopenia [Recovered/Resolved]
  - Off label use [Unknown]
